FAERS Safety Report 4448254-X (Version None)
Quarter: 2004Q3

REPORT INFORMATION
  Report Type: 
  Country: None (occurrence: None)
  Receive Date: 20040910
  Receipt Date: 20040825
  Transmission Date: 20050211
  Serious: Yes (Other)
  Sender: FDA-Public Use
  Company Number: 04-021

PATIENT
  Sex: Female

DRUGS (1)
  1. ALBUTEIN [Suspect]
     Dosage: 1 VIAL; 1X; IV
     Route: 042
     Dates: start: 19890316, end: 19890318

REACTIONS (1)
  - HEPATITIS C ANTIBODY POSITIVE [None]
